FAERS Safety Report 7714438-8 (Version None)
Quarter: 2011Q3

REPORT INFORMATION
  Report Type: 
  Country: None (occurrence: None)
  Receive Date: 20110829
  Receipt Date: 20110509
  Transmission Date: 20111222
  Serious: No
  Sender: FDA-Public Use
  Company Number: US-BAYER-2011-040766

PATIENT
  Age: 66 Year
  Sex: Female

DRUGS (1)
  1. MAGNEVIST [Suspect]
     Dosage: 14 ML, UNK
     Route: 042
     Dates: start: 20110509, end: 20110509

REACTIONS (1)
  - URTICARIA [None]
